FAERS Safety Report 7053313-1 (Version None)
Quarter: 2010Q4

REPORT INFORMATION
  Report Type: 
  Country: None (occurrence: None)
  Receive Date: 20101020
  Receipt Date: 20101007
  Transmission Date: 20110411
  Serious: Yes (Other)
  Sender: FDA-Public Use
  Company Number: PHHY2010CA48024

PATIENT
  Sex: Female

DRUGS (1)
  1. ACLASTA [Suspect]
     Indication: OSTEOPOROSIS
     Dosage: UNK
     Route: 042
     Dates: start: 20090813

REACTIONS (5)
  - ABDOMINAL DISTENSION [None]
  - ARTHRALGIA [None]
  - DISCOMFORT [None]
  - INFLUENZA LIKE ILLNESS [None]
  - MALAISE [None]
